FAERS Safety Report 17472810 (Version 1)
Quarter: 2020Q1

REPORT INFORMATION
  Report Type: Report from Study
  Country: CO (occurrence: CO)
  Receive Date: 20200228
  Receipt Date: 20200228
  Transmission Date: 20200409
  Serious: Yes (Hospitalization)
  Sender: FDA-Public Use
  Company Number: CO-ROCHE-2455724

PATIENT
  Sex: Male

DRUGS (1)
  1. CELLCEPT [Suspect]
     Active Substance: MYCOPHENOLATE MOFETIL\MYCOPHENOLATE MOFETIL HYDROCHLORIDE
     Indication: PRODUCT USED FOR UNKNOWN INDICATION
     Dosage: 1 DAILY OF MYCOPHENOLATE
     Route: 048

REACTIONS (5)
  - Infection [Unknown]
  - Transplant rejection [Unknown]
  - Bone disorder [Unknown]
  - Blood creatinine increased [Recovering/Resolving]
  - Malaise [Recovering/Resolving]
